FAERS Safety Report 21390803 (Version 1)
Quarter: 2022Q3

REPORT INFORMATION
  Report Type: Spontaneous
  Country: US (occurrence: None)
  Receive Date: 20220928
  Receipt Date: 20220928
  Transmission Date: 20221027
  Serious: Yes (Hospitalization)
  Sender: FDA-Public Use
  Company Number: None

PATIENT
  Age: 37 Year
  Sex: Male
  Weight: 90 kg

DRUGS (2)
  1. AMPHETAMINE SULFATE\DEXTROAMPHETAMINE [Suspect]
     Active Substance: AMPHETAMINE SULFATE\DEXTROAMPHETAMINE
     Dosage: 30 MG BID PO?
     Route: 048
  2. ATENOLOL [Suspect]
     Active Substance: ATENOLOL

REACTIONS (4)
  - Alcohol use [None]
  - Suicidal ideation [None]
  - Physical assault [None]
  - Intentional overdose [None]

NARRATIVE: CASE EVENT DATE: 20220912
